FAERS Safety Report 4445324-7 (Version None)
Quarter: 2004Q3

REPORT INFORMATION
  Report Type: 
  Country: None (occurrence: None)
  Receive Date: 20040903
  Receipt Date: 20040819
  Transmission Date: 20050211
  Serious: No
  Sender: FDA-Public Use
  Company Number: 04P-167-0268683-00

PATIENT
  Age: 43 Year
  Sex: Female

DRUGS (10)
  1. VALPROATE SODIUM [Suspect]
     Indication: MOOD SWINGS
     Dosage: 600 MG, 2 IN 1 D, ORAL
     Route: 048
     Dates: start: 20040628, end: 20040706
  2. VALPROATE SODIUM [Suspect]
     Indication: MOOD SWINGS
     Dosage: 600 MG, 2 IN 1 D, ORAL
     Route: 048
     Dates: start: 20040707
  3. CLOZAPINE [Suspect]
     Indication: SCHIZOAFFECTIVE DISORDER
     Dosage: SEE IMAGE
     Dates: start: 20040206, end: 20040226
  4. CLOZAPINE [Suspect]
     Indication: SCHIZOAFFECTIVE DISORDER
     Dosage: SEE IMAGE
     Dates: start: 20040628, end: 20040706
  5. CLOZAPINE [Suspect]
     Indication: SCHIZOAFFECTIVE DISORDER
     Dosage: SEE IMAGE
     Dates: start: 20030522
  6. CLOZAPINE [Suspect]
     Indication: SCHIZOAFFECTIVE DISORDER
     Dosage: SEE IMAGE
     Dates: start: 20040707
  7. SULPIRIDE [Concomitant]
  8. CITALOPRAM [Concomitant]
  9. FOLIC ACID [Concomitant]
  10. ATORVASTATIN CALCIUM [Concomitant]

REACTIONS (4)
  - DRUG INTERACTION [None]
  - DRUG LEVEL INCREASED [None]
  - MYOCLONUS [None]
  - SCHIZOAFFECTIVE DISORDER [None]
